FAERS Safety Report 7000380-7 (Version None)
Quarter: 2010Q3

REPORT INFORMATION
  Report Type: 
  Country: None (occurrence: None)
  Receive Date: 20100920
  Receipt Date: 20071128
  Transmission Date: 20110219
  Serious: Yes (Other)
  Sender: FDA-Public Use
  Company Number: US-ASTRAZENECA-2006UW08439

PATIENT
  Age: 50 Year
  Sex: Female
  Weight: 68 kg

DRUGS (21)
  1. SEROQUEL [Suspect]
     Indication: DEPRESSION
     Route: 048
     Dates: start: 20010101
  2. SEROQUEL [Suspect]
     Indication: SCHIZOPHRENIA
     Route: 048
     Dates: start: 20010101
  3. SEROQUEL [Suspect]
     Indication: BIPOLAR DISORDER
     Route: 048
     Dates: start: 20010101
  4. SEROQUEL [Suspect]
     Route: 048
     Dates: start: 20010816
  5. SEROQUEL [Suspect]
     Route: 048
     Dates: start: 20010816
  6. SEROQUEL [Suspect]
     Route: 048
     Dates: start: 20010816
  7. ABILIFY [Concomitant]
  8. RISPERDAL [Concomitant]
     Dates: start: 19990101
  9. ZYPREXA [Concomitant]
     Dosage: 5 MG TO 7.5. MG
     Dates: start: 19970101
  10. TRILAFON [Concomitant]
     Dosage: 4 - 8 MG HS
     Dates: start: 19951108
  11. EFFEXOR [Concomitant]
     Dates: start: 19951108
  12. ASPIRIN [Concomitant]
     Route: 048
     Dates: start: 20000207
  13. ATENOLOL [Concomitant]
     Dates: start: 20010513
  14. ENALAPRIL [Concomitant]
     Dates: start: 20051114
  15. HYDROCHLOROTHIAZIDE [Concomitant]
     Dates: start: 20051114
  16. PROZAC [Concomitant]
     Indication: DEPRESSION
     Dosage: 20 - 40 MG DAILY
     Dates: start: 20010513
  17. METHYLPREDNISOLONE [Concomitant]
     Dosage: 4 MG, TAKE AS DIRECTED
     Dates: start: 20010709
  18. VIOXX [Concomitant]
     Dates: start: 20010901
  19. NITROGLYCERIN [Concomitant]
     Route: 060
     Dates: start: 20010810
  20. SKELAXIN [Concomitant]
     Dates: start: 20010828
  21. UNIVASC [Concomitant]
     Dates: start: 20010513

REACTIONS (2)
  - DIABETES MELLITUS [None]
  - PANCREATITIS [None]
